FAERS Safety Report 4538676-0 (Version None)
Quarter: 2004Q4

REPORT INFORMATION
  Report Type: 
  Country: None (occurrence: None)
  Receive Date: 20041222
  Receipt Date: 20041203
  Transmission Date: 20050328
  Serious: Yes (Death)
  Sender: FDA-Public Use
  Company Number: 04-321

PATIENT
  Age: 42 Year

DRUGS (2)
  1. IBUPROFEN [Suspect]
  2. COCAINE (COCAINE) [Suspect]

REACTIONS (1)
  - OVERDOSE [None]
